FAERS Safety Report 4648435-6 (Version None)
Quarter: 2005Q2

REPORT INFORMATION
  Report Type: 
  Country: None (occurrence: None)
  Receive Date: 20050427
  Receipt Date: 20050411
  Transmission Date: 20051028
  Serious: Yes (Hospitalization)
  Sender: FDA-Public Use
  Company Number: FR_050306099

PATIENT
  Age: 73 Year
  Sex: Female
  Weight: 80 kg

DRUGS (1)
  1. FORTEO [Suspect]
     Indication: OSTEOPOROSIS
     Dosage: 20 UG/1 DAY
     Dates: start: 20050306, end: 20050320

REACTIONS (4)
  - GUILLAIN-BARRE SYNDROME [None]
  - HYPERCALCAEMIA [None]
  - POLYNEUROPATHY [None]
  - RADICULOPATHY [None]
